FAERS Safety Report 5014549-4 (Version None)
Quarter: 2006Q2

REPORT INFORMATION
  Report Type: 
  Country: None (occurrence: None)
  Receive Date: 20060525
  Receipt Date: 20060512
  Transmission Date: 20061013
  Serious: Yes (Death)
  Sender: FDA-Public Use
  Company Number: 2005123202

PATIENT
  Age: 93 Year
  Sex: Female
  Weight: 56.246 kg

DRUGS (8)
  1. DETROL LA [Suspect]
     Indication: HYPERTONIC BLADDER
     Dosage: 2 MG (2 MG, 1 IN 1 D), ORAL
     Route: 048
     Dates: start: 20050812
  2. FUROSEMIDE [Suspect]
     Indication: HYPERTENSION
     Dates: end: 20050801
  3. LEVOTHYROXINE SODIUM [Concomitant]
  4. ALLOPURINOL [Concomitant]
  5. ESTRADIOL [Concomitant]
  6. TRAZODONE HCL [Concomitant]
  7. VITAMINS (VITAMINS) [Concomitant]
  8. OCUVITE PRESERVISION (ASCORBIC ACID, COPPER, RETINOL, TOCOPHEROL, ZINC [Concomitant]

REACTIONS (3)
  - HYPERTENSION [None]
  - INSOMNIA [None]
  - PRURITUS [None]
